FAERS Safety Report 9259360 (Version 1)
Quarter: 2013Q2

REPORT INFORMATION
  Report Type: Spontaneous
  Country: US (occurrence: US)
  Receive Date: 20130427
  Receipt Date: 20130427
  Transmission Date: 20140414
  Serious: No
  Sender: FDA-Public Use
  Company Number: US-ASTRAZENECA-2013SE24873

PATIENT
  Age: 50 Year
  Sex: Male
  Weight: 86.2 kg

DRUGS (6)
  1. CRESTOR [Suspect]
     Indication: BLOOD CHOLESTEROL INCREASED
     Route: 048
  2. CRESTOR [Suspect]
     Indication: BLOOD CHOLESTEROL INCREASED
     Route: 048
     Dates: start: 2011
  3. ZETIA [Concomitant]
  4. PREVACID [Concomitant]
     Indication: GASTROOESOPHAGEAL REFLUX DISEASE
  5. PREDNISONE [Concomitant]
     Indication: SYSTEMIC LUPUS ERYTHEMATOSUS
     Dosage: 5 MG
  6. LEVOTHYROXINE [Concomitant]
     Indication: THYROID DISORDER

REACTIONS (4)
  - Coeliac disease [Unknown]
  - Coeliac disease [Unknown]
  - Blood cholesterol increased [Unknown]
  - Drug ineffective [Unknown]
